FAERS Safety Report 5187872-0 (Version None)
Quarter: 2006Q4

REPORT INFORMATION
  Report Type: 
  Country: None (occurrence: None)
  Receive Date: 20061221
  Receipt Date: 20061025
  Transmission Date: 20070319
  Serious: No
  Sender: FDA-Public Use
  Company Number: US-GLAXOSMITHKLINE-A0624927A

PATIENT
  Age: 43 Year
  Sex: Female

DRUGS (2)
  1. AVANDARYL [Suspect]
     Dosage: 4MG PER DAY
     Route: 048
     Dates: start: 20061025
  2. HYDROCHLOROTHIAZIDE [Concomitant]

REACTIONS (1)
  - MUSCLE SPASMS [None]
